FAERS Safety Report 10660055 (Version 2)
Quarter: 2014Q4

REPORT INFORMATION
  Report Type: Report from Study
  Country: KP (occurrence: KR)
  Receive Date: 20141217
  Receipt Date: 20141230
  Transmission Date: 20150529
  Serious: Yes (Hospitalization, Other)
  Sender: FDA-Public Use
  Company Number: KP-GLAXOSMITHKLINE-KR2014GSK036116

PATIENT
  Age: 40 Year
  Weight: 75 kg

DRUGS (5)
  1. SALAGEN [Concomitant]
     Active Substance: PILOCARPINE HYDROCHLORIDE
     Dosage: 5 MG, TID
     Route: 048
     Dates: start: 20141201
  2. ASPIRIN. [Concomitant]
     Active Substance: ASPIRIN
     Indication: PAIN
     Dosage: 100 MG, BID
     Route: 048
     Dates: start: 20141029
  3. PAZOPANIB [Suspect]
     Active Substance: PAZOPANIB
     Indication: RENAL CELL CARCINOMA
     Dosage: 400 MG, QD
     Route: 048
     Dates: start: 20141020, end: 20141211
  4. PAZOPANIB [Suspect]
     Active Substance: PAZOPANIB
     Dosage: 400 MG, QD
     Route: 048
     Dates: start: 20141104
  5. MEGACE SUSPENSION [Concomitant]
     Indication: DECREASED APPETITE
     Dosage: 10 ML, BID
     Route: 048
     Dates: start: 20141029

REACTIONS (2)
  - Shock [Recovered/Resolved]
  - Dyspnoea [Recovering/Resolving]

NARRATIVE: CASE EVENT DATE: 20141205
